FAERS Safety Report 18606198 (Version 2)
Quarter: 2020Q4

REPORT INFORMATION
  Report Type: Spontaneous
  Country: US (occurrence: US)
  Receive Date: 20201211
  Receipt Date: 20201228
  Transmission Date: 20210114
  Serious: No
  Sender: FDA-Public Use
  Company Number: US-PFIZER INC-2020464057

PATIENT
  Age: 9 Month
  Sex: Male

DRUGS (2)
  1. EUCRISA [Suspect]
     Active Substance: CRISABOROLE
     Indication: RASH
  2. EUCRISA [Suspect]
     Active Substance: CRISABOROLE
     Indication: DERMATITIS ATOPIC
     Dosage: UNK, 2X/DAY (APPLY TOPICALLY TWICE A DAY)
     Route: 061

REACTIONS (4)
  - Intentional product misuse [Unknown]
  - Pruritus [Unknown]
  - Insomnia [Unknown]
  - Condition aggravated [Unknown]
